FAERS Safety Report 19468197 (Version 6)
Quarter: 2022Q1

REPORT INFORMATION
  Report Type: Spontaneous
  Country: GB (occurrence: GB)
  Receive Date: 20210628
  Receipt Date: 20220125
  Transmission Date: 20220423
  Serious: Yes (Hospitalization, Other)
  Sender: FDA-Public Use
  Company Number: NVSC2021GB141387

PATIENT
  Age: 8 Year
  Sex: Male
  Weight: 20.2 kg

DRUGS (81)
  1. CYCLOPHOSPHAMIDE [Suspect]
     Active Substance: CYCLOPHOSPHAMIDE
     Indication: Neoplasm malignant
     Dosage: 210 MG QD (1 IN 1 DAY) (4 DAYS)
     Route: 042
     Dates: start: 20210401, end: 20210405
  2. CYCLOPHOSPHAMIDE [Suspect]
     Active Substance: CYCLOPHOSPHAMIDE
     Dosage: 210 MG (1 IN 1 DAY)
     Route: 042
     Dates: start: 20210504
  3. CYCLOPHOSPHAMIDE [Suspect]
     Active Substance: CYCLOPHOSPHAMIDE
     Dosage: 250 MILLILITRE PER SQUARE METRE QD (MAXIMUM 5 DAYS EVERY 21 DAYS)
     Route: 042
  4. TOPOTECAN HYDROCHLORIDE [Suspect]
     Active Substance: TOPOTECAN HYDROCHLORIDE
     Indication: Neoplasm malignant
     Dosage: 0.64 MG/M2, QD
     Route: 042
     Dates: start: 20210401, end: 20210508
  5. TOPOTECAN HYDROCHLORIDE [Suspect]
     Active Substance: TOPOTECAN HYDROCHLORIDE
     Dosage: 0.64 MG (1 IN 1 DAY)
     Route: 065
     Dates: start: 20210504
  6. TOPOTECAN HYDROCHLORIDE [Suspect]
     Active Substance: TOPOTECAN HYDROCHLORIDE
     Dosage: 0.65 MG/M2, QD
     Route: 042
     Dates: start: 20210601, end: 20210605
  7. TOPOTECAN HYDROCHLORIDE [Suspect]
     Active Substance: TOPOTECAN HYDROCHLORIDE
     Dosage: 0.63 MG/M2, QD
     Route: 042
     Dates: start: 20210628
  8. TOPOTECAN HYDROCHLORIDE [Suspect]
     Active Substance: TOPOTECAN HYDROCHLORIDE
     Dosage: 0.75 MG/M2 (MAXIMUN 5 DAYS EVERY 21 DAYS)
     Route: 042
  9. VENETOCLAX [Suspect]
     Active Substance: VENETOCLAX
     Indication: Neoplasm malignant
     Dosage: 350 MG (350 MG- 2) (8 DAYS)
     Route: 048
     Dates: start: 20210330, end: 20210407
  10. VENETOCLAX [Suspect]
     Active Substance: VENETOCLAX
     Dosage: 350 MG, QD
     Route: 048
     Dates: start: 20210331
  11. VENETOCLAX [Suspect]
     Active Substance: VENETOCLAX
     Dosage: 350 MG (350 MG- 2)
     Route: 065
     Dates: start: 20210504
  12. VENETOCLAX [Suspect]
     Active Substance: VENETOCLAX
     Dosage: 170 MG, QD
     Route: 048
  13. OMEPRAZOLE [Concomitant]
     Active Substance: OMEPRAZOLE
     Indication: Dyspepsia
     Dosage: 20 MG QD
     Route: 048
     Dates: start: 20210310
  14. DEXAMETHASONE [Concomitant]
     Active Substance: DEXAMETHASONE
     Indication: Analgesic therapy
     Dosage: 8 MG, QD
     Route: 048
     Dates: start: 20210330, end: 20210403
  15. DEXAMETHASONE [Concomitant]
     Active Substance: DEXAMETHASONE
     Indication: Chemotherapy side effect prophylaxis
     Dosage: 6 MG, QD
     Route: 042
     Dates: end: 20210406
  16. DEXAMETHASONE [Concomitant]
     Active Substance: DEXAMETHASONE
     Indication: Nausea
     Dosage: 4 MG, QD
     Route: 048
     Dates: end: 20210407
  17. DEXAMETHASONE [Concomitant]
     Active Substance: DEXAMETHASONE
     Indication: Illness
     Dosage: 4 MG, QD
     Route: 042
     Dates: start: 20210504, end: 20210605
  18. DEXAMETHASONE [Concomitant]
     Active Substance: DEXAMETHASONE
     Indication: Prophylaxis of nausea and vomiting
     Dosage: 4 MG, QD
     Route: 042
     Dates: start: 20210531, end: 20210606
  19. DEXAMETHASONE [Concomitant]
     Active Substance: DEXAMETHASONE
     Dosage: 3.8 MG, QD
     Route: 048
     Dates: start: 20210605, end: 20210609
  20. DEXAMETHASONE [Concomitant]
     Active Substance: DEXAMETHASONE
     Dosage: 4 MG, QD
     Route: 048
     Dates: start: 20210627
  21. DEXAMETHASONE [Concomitant]
     Active Substance: DEXAMETHASONE
     Dosage: 6 MG, QD
     Route: 048
     Dates: start: 20210726
  22. DEXAMETHASONE [Concomitant]
     Active Substance: DEXAMETHASONE
     Dosage: 4 MG, BID (2 MG, 2 IN 1D)
     Route: 048
  23. MIDAZOLAM [Concomitant]
     Active Substance: MIDAZOLAM
     Indication: Pain
     Dosage: 2 MG, PRN
     Route: 048
     Dates: start: 20210321
  24. CYCLIZINE [Concomitant]
     Active Substance: CYCLIZINE
     Indication: Antiemetic supportive care
     Dosage: 75 MG (25 MG,3 IN 1 DAY)
     Route: 042
     Dates: start: 20210330
  25. CYCLIZINE [Concomitant]
     Active Substance: CYCLIZINE
     Dosage: 75 MG (25 MG,3 IN 1 DAY)
     Route: 048
     Dates: start: 20210602
  26. CYCLIZINE [Concomitant]
     Active Substance: CYCLIZINE
     Dosage: 20 MG, QD,3 IN 1 DAY
     Route: 048
     Dates: start: 20210921
  27. ONDANSETRON [Concomitant]
     Active Substance: ONDANSETRON
     Indication: Antiemetic supportive care
     Dosage: 12 MG (4 MG, TID)
     Route: 042
     Dates: start: 20210330
  28. ONDANSETRON [Concomitant]
     Active Substance: ONDANSETRON
     Indication: Prophylaxis of nausea and vomiting
     Dosage: 12 MG (4 MG, TID)
     Route: 042
     Dates: start: 20210602
  29. CIPROFLOXACIN [Concomitant]
     Active Substance: CIPROFLOXACIN
     Indication: Soft tissue infection
     Dosage: 1000 MG, BID (500 MG, 2 IN 1 D)
     Route: 048
     Dates: start: 20210924
  30. CHLORPHENIRAMINE MALEATE [Concomitant]
     Active Substance: CHLORPHENIRAMINE MALEATE
     Indication: Hypersensitivity
     Dosage: 4 MG (AS REQUIRED) PRN
     Route: 042
     Dates: start: 20210329
  31. CHLORPHENIRAMINE MALEATE [Concomitant]
     Active Substance: CHLORPHENIRAMINE MALEATE
     Indication: Allergic transfusion reaction
     Dosage: 2.5 MG, PRN
     Route: 042
     Dates: start: 20210412, end: 20210412
  32. CHLORPHENIRAMINE MALEATE [Concomitant]
     Active Substance: CHLORPHENIRAMINE MALEATE
     Indication: Allergy prophylaxis
     Dosage: 4 MG, PRN
     Route: 048
     Dates: start: 20210601
  33. CHLORPHENIRAMINE MALEATE [Concomitant]
     Active Substance: CHLORPHENIRAMINE MALEATE
     Indication: Drug hypersensitivity
     Dosage: 5 MG, PRN
     Route: 048
     Dates: start: 20210713
  34. LINEZOLID [Concomitant]
     Active Substance: LINEZOLID
     Indication: Soft tissue infection
     Dosage: 600 MG, TID (200 MG, 3 IN 1 D)
     Route: 065
     Dates: start: 20210913
  35. CHOLECALCIFEROL [Concomitant]
     Active Substance: CHOLECALCIFEROL
     Indication: Vitamin supplementation
     Dosage: 1 DOSAGE FORM, TIW
     Route: 048
     Dates: start: 20210331
  36. SULFAMETHOXAZOLE\TRIMETHOPRIM [Concomitant]
     Active Substance: SULFAMETHOXAZOLE\TRIMETHOPRIM
     Indication: Antibiotic prophylaxis
     Dosage: 360 MG QD
     Route: 048
     Dates: start: 20210331
  37. GABAPENTIN [Concomitant]
     Active Substance: GABAPENTIN
     Indication: Pain
     Dosage: 200 MG, TID (600 MG)
     Route: 048
     Dates: start: 20210329
  38. LIPEGFILGRASTIM [Concomitant]
     Active Substance: LIPEGFILGRASTIM
     Indication: Prophylaxis
     Dosage: 3 MG
     Route: 058
     Dates: start: 20210407, end: 20210407
  39. ACETAMINOPHEN [Concomitant]
     Active Substance: ACETAMINOPHEN
     Indication: Pain prophylaxis
     Dosage: 330 MG, QD
     Route: 048
     Dates: start: 20210324
  40. ACETAMINOPHEN [Concomitant]
     Active Substance: ACETAMINOPHEN
     Indication: Pain
     Dosage: 330 MG, QD
     Route: 048
     Dates: start: 20210629
  41. ACETAMINOPHEN [Concomitant]
     Active Substance: ACETAMINOPHEN
     Indication: Prophylaxis
  42. HEPARIN [Concomitant]
     Active Substance: HEPARIN SODIUM
     Indication: Product used for unknown indication
     Dosage: 10 UNITS/ML, TID
     Route: 042
     Dates: start: 20210329
  43. METOCLOPRAMIDE [Concomitant]
     Active Substance: METOCLOPRAMIDE
     Indication: Nausea
     Dosage: 5 MG, TID (15 MG)
     Route: 042
     Dates: start: 20210330, end: 20210507
  44. METOCLOPRAMIDE [Concomitant]
     Active Substance: METOCLOPRAMIDE
     Indication: Prophylaxis of nausea and vomiting
     Dosage: 5 MG, TID (15 MG)
     Route: 048
     Dates: start: 20210508
  45. METOCLOPRAMIDE [Concomitant]
     Active Substance: METOCLOPRAMIDE
     Indication: Antiemetic supportive care
     Dosage: 15 MG (3 MG, 3 IN 1 D) TID
     Route: 042
  46. METOCLOPRAMIDE [Concomitant]
     Active Substance: METOCLOPRAMIDE
     Dosage: 5 MG, QD
     Route: 042
     Dates: start: 20210919
  47. SCOPOLAMINE [Concomitant]
     Active Substance: SCOPOLAMINE
     Indication: Prophylaxis of nausea and vomiting
     Dosage: 1 MG, PRN
     Route: 061
     Dates: start: 20210601
  48. SCOPOLAMINE [Concomitant]
     Active Substance: SCOPOLAMINE
     Dosage: 0.5 MG, PRN
     Route: 061
     Dates: start: 20210630
  49. SCOPOLAMINE [Concomitant]
     Active Substance: SCOPOLAMINE
     Dosage: 0.5 MG, PRN
     Route: 061
     Dates: start: 20210922
  50. LIPEGFILGRASTIM [Concomitant]
     Active Substance: LIPEGFILGRASTIM
     Indication: Blood disorder prophylaxis
     Dosage: 2.5 MG (5 MG, TID)
     Route: 058
     Dates: start: 20210509, end: 20210510
  51. LIPEGFILGRASTIM [Concomitant]
     Active Substance: LIPEGFILGRASTIM
     Indication: Prophylaxis
     Dosage: 2.5 MG, STAT
     Route: 058
     Dates: start: 20210703
  52. DOCUSATE [Concomitant]
     Active Substance: DOCUSATE
     Indication: Constipation prophylaxis
     Dosage: 1000 MG, QD
     Route: 048
     Dates: start: 20210329, end: 20210508
  53. DOCUSATE [Concomitant]
     Active Substance: DOCUSATE
     Indication: Faeces hard
     Dosage: 100 MG, QD (3 IN 1DAY)
     Route: 048
     Dates: start: 20210508
  54. DOCUSATE [Concomitant]
     Active Substance: DOCUSATE
     Indication: Constipation
     Dosage: 100 MG, TID (300 MG)
     Route: 048
  55. DOCUSATE [Concomitant]
     Active Substance: DOCUSATE
     Dosage: 300 MG, QD
     Route: 048
     Dates: start: 20210628
  56. DOCUSATE [Concomitant]
     Active Substance: DOCUSATE
     Dosage: 50 MG, QD
     Route: 048
     Dates: start: 20210726
  57. DOCUSATE [Concomitant]
     Active Substance: DOCUSATE
     Dosage: 50 MG (2 IN 1 D) BID
     Route: 048
  58. MORPHINE [Concomitant]
     Active Substance: MORPHINE
     Indication: Pain
     Dosage: 120 MG, QD (SUSTAINED RELEASE)
     Route: 048
     Dates: start: 20210504, end: 20210509
  59. MORPHINE [Concomitant]
     Active Substance: MORPHINE
     Indication: Pain in extremity
     Dosage: 10 MG (AS REQUIRED) PRN
     Route: 048
     Dates: start: 20210509
  60. MORPHINE [Concomitant]
     Active Substance: MORPHINE
     Dosage: 20 MG, PRN
     Route: 048
     Dates: end: 20210509
  61. MORPHINE [Concomitant]
     Active Substance: MORPHINE
     Dosage: 60 MG, QD (SUSTAINED RELEASE)
     Route: 048
     Dates: start: 20210512, end: 20210517
  62. MORPHINE [Concomitant]
     Active Substance: MORPHINE
     Dosage: 80 MG, QD (SUSTAINED RELEASE)
     Route: 048
     Dates: end: 20210512
  63. MORPHINE [Concomitant]
     Active Substance: MORPHINE
     Dosage: 40 MG, QD (SUSTAINED RELEASE)
     Route: 048
  64. MORPHINE [Concomitant]
     Active Substance: MORPHINE
     Dosage: 20 MG, BID (40 MG)
     Route: 048
     Dates: start: 20210517
  65. MORPHINE [Concomitant]
     Active Substance: MORPHINE
     Dosage: 10 MG, PRN
     Route: 048
     Dates: start: 20210628
  66. MORPHINE [Concomitant]
     Active Substance: MORPHINE
     Dosage: 30 MG, BID (10 MG 3 IN 1 D)
     Route: 048
     Dates: start: 20210628
  67. MOVICOL [Concomitant]
     Active Substance: POLYETHYLENE GLYCOL 3350\POTASSIUM CHLORIDE\SODIUM BICARBONATE\SODIUM CHLORIDE
     Indication: Constipation
     Dosage: UNK (1-2 SACHETS PRN)
     Route: 048
     Dates: start: 20210517
  68. LEVOPROMAZIN [Concomitant]
     Active Substance: LEVOMEPROMAZINE
     Indication: Antiemetic supportive care
     Dosage: 2.2 MG, QD
     Route: 042
     Dates: start: 20210507, end: 20210508
  69. LEVOPROMAZIN [Concomitant]
     Active Substance: LEVOMEPROMAZINE
     Indication: Prophylaxis of nausea and vomiting
     Dosage: 2.2 MG (1.1 MG, PRN)
     Route: 042
     Dates: start: 20210601
  70. LEVOPROMAZIN [Concomitant]
     Active Substance: LEVOMEPROMAZINE
     Dosage: 2.2 MG, QD
     Route: 042
     Dates: start: 20210628
  71. LEVOPROMAZIN [Concomitant]
     Active Substance: LEVOMEPROMAZINE
     Dosage: 2.2 MG, BID (1.1 MG, 2 IN D)
     Route: 065
  72. LEVOPROMAZIN [Concomitant]
     Active Substance: LEVOMEPROMAZINE
     Dosage: 6 MG, BID (3 MG, 2 IN 1 D)
     Route: 048
     Dates: start: 20210921
  73. LEVOPROMAZIN [Concomitant]
     Active Substance: LEVOMEPROMAZINE
     Dosage: 1.1 MG, QD
     Route: 042
  74. TINZAPARIN [Concomitant]
     Active Substance: TINZAPARIN
     Indication: Anticoagulant therapy
     Dosage: 6000 IU QD
     Route: 058
     Dates: start: 20210526
  75. SODIUM CHLORIDE [Concomitant]
     Active Substance: SODIUM CHLORIDE
     Indication: Tumour lysis syndrome
     Dosage: 375 ML
     Route: 042
     Dates: start: 20210330, end: 20210407
  76. TEICOPLANIN [Concomitant]
     Active Substance: TEICOPLANIN
     Indication: Infection
     Dosage: 235 MG
     Route: 042
     Dates: start: 20210808
  77. MORPHINE [Concomitant]
     Active Substance: MORPHINE
     Indication: Pain
     Dosage: 30 MG, Q4H
     Route: 048
     Dates: start: 20210324, end: 20210504
  78. MORPHINE [Concomitant]
     Active Substance: MORPHINE
     Dosage: 10 MG, PRN
     Route: 048
     Dates: start: 20210629
  79. MORPHINE [Concomitant]
     Active Substance: MORPHINE
     Dosage: 10 MG, PRN
     Route: 048
     Dates: start: 20210806
  80. PIPERACILLIN SODIUM\TAZOBACTAM SODIUM [Concomitant]
     Active Substance: PIPERACILLIN SODIUM\TAZOBACTAM SODIUM
     Indication: Infection
     Dosage: 1.8 G, QD
     Route: 042
     Dates: start: 20210806
  81. ALLOPURINOL [Concomitant]
     Active Substance: ALLOPURINOL
     Indication: Tumour lysis syndrome
     Dosage: 240 MG (QD)
     Route: 048
     Dates: start: 20210330, end: 20210404

REACTIONS (11)
  - Febrile neutropenia [Not Recovered/Not Resolved]
  - Ear pain [Unknown]
  - Pyrexia [Not Recovered/Not Resolved]
  - Oropharyngeal pain [Unknown]
  - Vomiting [Unknown]
  - Cellulitis [Unknown]
  - Palpitations [Unknown]
  - Groin pain [Unknown]
  - Nodule [Unknown]
  - White blood cell count decreased [Unknown]
  - Product use issue [Unknown]

NARRATIVE: CASE EVENT DATE: 20210609
